FAERS Safety Report 18124439 (Version 6)
Quarter: 2025Q4

REPORT INFORMATION
  Report Type: Report from Study
  Country: US (occurrence: US)
  Receive Date: 20200807
  Receipt Date: 20251217
  Transmission Date: 20260117
  Serious: No
  Sender: PFIZER
  Company Number: US-PFIZER INC-2020300502

PATIENT
  Age: 71 Year
  Sex: Female

DRUGS (2)
  1. XELJANZ XR [Suspect]
     Active Substance: TOFACITINIB CITRATE
     Dosage: 11 MG, DAILY
     Route: 048
  2. RESTASIS [Suspect]
     Active Substance: CYCLOSPORINE
     Dosage: 1 DROP IN BOTH EYES EVERY 2 HOURS

REACTIONS (8)
  - Memory impairment [Unknown]
  - Blood cholesterol increased [Unknown]
  - Arthritis [Unknown]
  - Nasopharyngitis [Not Recovered/Not Resolved]
  - Nervousness [Not Recovered/Not Resolved]
  - Peripheral swelling [Not Recovered/Not Resolved]
  - Off label use [Unknown]
  - Product use issue [Unknown]
